FAERS Safety Report 22088370 (Version 1)
Quarter: 2023Q1

REPORT INFORMATION
  Report Type: Spontaneous
  Country: US (occurrence: None)
  Receive Date: 20230310
  Receipt Date: 20230310
  Transmission Date: 20230418
  Serious: Yes (Other)
  Sender: FDA-Public Use
  Company Number: None

PATIENT
  Age: 4 Year
  Sex: Male
  Weight: 15.2 kg

DRUGS (3)
  1. ASPARLAS [Suspect]
     Active Substance: CALASPARGASE PEGOL-MKNL
     Indication: B precursor type acute leukaemia
     Dosage: 2.2 ML ONCE INTRAVENOUS
     Route: 042
  2. VINCRISTINE [Concomitant]
     Active Substance: VINCRISTINE
  3. METHOTREXATE [Concomitant]
     Active Substance: METHOTREXATE

REACTIONS (10)
  - Vomiting [None]
  - Feeling abnormal [None]
  - Rash macular [None]
  - Infusion related reaction [None]
  - Periorbital swelling [None]
  - Lip swelling [None]
  - Erythema [None]
  - Heart rate abnormal [None]
  - Respiration abnormal [None]
  - Therapy cessation [None]

NARRATIVE: CASE EVENT DATE: 20230228
